FAERS Safety Report 16305768 (Version 1)
Quarter: 2019Q2

REPORT INFORMATION
  Report Type: Spontaneous
  Country: US (occurrence: US)
  Receive Date: 20190513
  Receipt Date: 20190513
  Transmission Date: 20190711
  Serious: Yes (Other)
  Sender: FDA-Public Use
  Company Number: US-TEVA-2018-US-887745

PATIENT
  Age: 30 Year
  Sex: Female

DRUGS (5)
  1. ENOXAPARIN [Suspect]
     Active Substance: ENOXAPARIN
     Indication: ANTICOAGULANT THERAPY
     Route: 065
  2. ENOXAPARIN [Suspect]
     Active Substance: ENOXAPARIN
     Indication: ANTICOAGULANT THERAPY
     Route: 065
  3. SILDENAFIL. [Concomitant]
     Active Substance: SILDENAFIL
     Indication: PULMONARY ARTERIAL HYPERTENSION
     Dosage: 20MG THREE TIMES A DAY
     Route: 065
  4. EPOPROSTENOL. [Suspect]
     Active Substance: EPOPROSTENOL
     Indication: ANTICOAGULANT THERAPY
     Dosage: 20 NG/KG/MIN OVER 8 WEEKS
     Route: 042
  5. EPOPROSTENOL. [Suspect]
     Active Substance: EPOPROSTENOL
     Indication: ANTICOAGULANT THERAPY
     Dosage: 2 NG/KG/MIN; FURTHER TITRATED TO 20 NG/KG/MIN
     Route: 042

REACTIONS (2)
  - Maternal exposure during pregnancy [Unknown]
  - Thrombocytopenia [Recovering/Resolving]
